FAERS Safety Report 19815531 (Version 1)
Quarter: 2021Q3

REPORT INFORMATION
  Report Type: Spontaneous
  Country: US (occurrence: US)
  Receive Date: 20210908
  Receipt Date: 20210908
  Transmission Date: 20211014
  Serious: Yes (Hospitalization)
  Sender: FDA-Public Use
  Company Number: None

PATIENT
  Sex: Male

DRUGS (1)
  1. MYCOPHENOLATE 500MG ACCORD HEALTHCARE [Suspect]
     Active Substance: MYCOPHENOLATE MOFETIL
     Indication: SARCOIDOSIS
     Route: 048
     Dates: start: 20201106

REACTIONS (7)
  - Nausea [None]
  - Pyrexia [None]
  - Nephrolithiasis [None]
  - Vomiting [None]
  - Chills [None]
  - Pain [None]
  - COVID-19 [None]
